FAERS Safety Report 10216268 (Version 1)
Quarter: 2014Q2

REPORT INFORMATION
  Report Type: Spontaneous
  Country: US (occurrence: None)
  Receive Date: 20140603
  Receipt Date: 20140603
  Transmission Date: 20141212
  Serious: Yes (Disabling)
  Sender: FDA-Public Use
  Company Number: None

PATIENT
  Age: 43 Year
  Sex: Male
  Weight: 108.41 kg

DRUGS (3)
  1. SULFAMETHOXAZOLE/TRIMETHOPRIM ANTIBIOTIC [Suspect]
     Indication: ERYTHEMA
     Route: 048
     Dates: start: 20140530, end: 20140601
  2. SULFAMETHOXAZOLE/TRIMETHOPRIM ANTIBIOTIC [Suspect]
     Indication: SWELLING
     Route: 048
     Dates: start: 20140530, end: 20140601
  3. SULFAMETHOXAZOLE/TRIMETHOPRIM ANTIBIOTIC [Suspect]
     Indication: INFECTION
     Route: 048
     Dates: start: 20140530, end: 20140601

REACTIONS (10)
  - Musculoskeletal stiffness [None]
  - Myalgia [None]
  - Joint stiffness [None]
  - Arthralgia [None]
  - Tachycardia [None]
  - Hypoaesthesia [None]
  - Hypoaesthesia [None]
  - Paraesthesia [None]
  - Mental impairment [None]
  - Feeling abnormal [None]
